FAERS Safety Report 12736077 (Version 2)
Quarter: 2016Q3

REPORT INFORMATION
  Report Type: Spontaneous
  Country: IT (occurrence: IT)
  Receive Date: 20160912
  Receipt Date: 20160928
  Transmission Date: 20161109
  Serious: Yes (Hospitalization)
  Sender: FDA-Public Use
  Company Number: IT-PFIZER INC-2016419975

PATIENT
  Age: 34 Year
  Sex: Male
  Weight: 81 kg

DRUGS (2)
  1. AZATIOPRINA /00001501/ [Suspect]
     Active Substance: AZATHIOPRINE
     Indication: COGAN^S SYNDROME
     Dosage: 50 MG, DAILY
     Route: 048
  2. METHOTREXATE (METHOTREXATE SODIUM) [Concomitant]
     Active Substance: METHOTREXATE SODIUM
     Indication: COGAN^S SYNDROME
     Dosage: 2 MG, DAILY
     Route: 048

REACTIONS (2)
  - Abdominal pain [Recovering/Resolving]
  - Lipase increased [Recovering/Resolving]

NARRATIVE: CASE EVENT DATE: 20160818
